FAERS Safety Report 14914818 (Version 2)
Quarter: 2018Q2

REPORT INFORMATION
  Report Type: Report from Study
  Country: AR (occurrence: AR)
  Receive Date: 20180518
  Receipt Date: 20180601
  Transmission Date: 20180711
  Serious: Yes (Hospitalization)
  Sender: FDA-Public Use
  Company Number: PHHY2018AR001817

PATIENT
  Sex: Female

DRUGS (1)
  1. GILENYA [Suspect]
     Active Substance: FINGOLIMOD HYDROCHLORIDE
     Indication: MULTIPLE SCLEROSIS
     Dosage: 0.5 MG, QD
     Route: 048

REACTIONS (8)
  - Influenza [Recovering/Resolving]
  - Feeling abnormal [Unknown]
  - Dry skin [Recovering/Resolving]
  - Vaginal haemorrhage [Unknown]
  - Menstruation irregular [Recovered/Resolved]
  - Alopecia [Recovered/Resolved]
  - Mood altered [Recovered/Resolved]
  - Weight increased [Recovered/Resolved]
